FAERS Safety Report 4459250-0 (Version None)
Quarter: 2004Q3

REPORT INFORMATION
  Report Type: 
  Country: None (occurrence: None)
  Receive Date: 20040922
  Receipt Date: 20040922
  Transmission Date: 20050211
  Serious: Yes (Other)
  Sender: FDA-Public Use
  Company Number: None

PATIENT
  Weight: 87.3 kg

DRUGS (1)
  1. TRAVOPROST  0.004% [Suspect]
     Indication: GLAUCOMA
     Dosage: 1 DROP QHS  INTRAOCULAR
     Route: 031
     Dates: start: 20040813, end: 20040831

REACTIONS (1)
  - PHOTOSENSITIVITY REACTION [None]
